FAERS Safety Report 15602478 (Version 2)
Quarter: 2018Q4

REPORT INFORMATION
  Report Type: Spontaneous
  Country: JP (occurrence: JP)
  Receive Date: 20181109
  Receipt Date: 20181128
  Transmission Date: 20190205
  Serious: Yes (Other)
  Sender: FDA-Public Use
  Company Number: JP-JNJFOC-20181104909

PATIENT

DRUGS (1)
  1. SIMPONI [Suspect]
     Active Substance: GOLIMUMAB
     Indication: PRODUCT USED FOR UNKNOWN INDICATION
     Route: 058

REACTIONS (7)
  - Swelling face [Unknown]
  - Pyrexia [Unknown]
  - Pyelonephritis [Unknown]
  - Drug effect incomplete [Unknown]
  - Pruritus [Unknown]
  - Pneumonia [Unknown]
  - Hepatic function abnormal [Unknown]
